FAERS Safety Report 16106148 (Version 2)
Quarter: 2019Q2

REPORT INFORMATION
  Report Type: Spontaneous
  Country: US (occurrence: US)
  Receive Date: 20190322
  Receipt Date: 20190506
  Transmission Date: 20190711
  Serious: Yes (Other)
  Sender: FDA-Public Use
  Company Number: US-ASTRAZENECA-2019SE43667

PATIENT
  Age: 671 Month
  Sex: Male
  Weight: 115.7 kg

DRUGS (27)
  1. ATORVASTATIN [Concomitant]
     Active Substance: ATORVASTATIN
     Indication: BLOOD CHOLESTEROL ABNORMAL
  2. VIAGRA [Concomitant]
     Active Substance: SILDENAFIL CITRATE
  3. FUROSEMIDE. [Concomitant]
     Active Substance: FUROSEMIDE
  4. NEXIUM [Suspect]
     Active Substance: ESOMEPRAZOLE MAGNESIUM
     Indication: DYSPEPSIA
     Route: 048
     Dates: start: 20061117
  5. METFORMIN [Concomitant]
     Active Substance: METFORMIN HYDROCHLORIDE
     Indication: DIABETES MELLITUS
  6. PRAVASTATIN. [Concomitant]
     Active Substance: PRAVASTATIN
  7. ALLOPURINOL. [Concomitant]
     Active Substance: ALLOPURINOL
  8. ELIQUIS [Concomitant]
     Active Substance: APIXABAN
     Indication: BLOOD DISORDER
  9. FUROSEMIDE. [Concomitant]
     Active Substance: FUROSEMIDE
     Indication: DIURETIC THERAPY
     Dates: start: 2010
  10. CARISOPRODOL. [Concomitant]
     Active Substance: CARISOPRODOL
  11. PREDNISONE. [Concomitant]
     Active Substance: PREDNISONE
  12. PRILOSEC [Suspect]
     Active Substance: OMEPRAZOLE MAGNESIUM
     Indication: DYSPEPSIA
     Dosage: GENERIC
     Route: 048
     Dates: start: 200502
  13. PANTOPRAZOLE [Suspect]
     Active Substance: PANTOPRAZOLE
     Indication: DYSPEPSIA
     Route: 065
     Dates: start: 20150102
  14. PRINIVIL [Concomitant]
     Active Substance: LISINOPRIL
  15. NAPROXEN. [Concomitant]
     Active Substance: NAPROXEN
  16. COLCHICINE. [Concomitant]
     Active Substance: COLCHICINE
  17. IBUPROFEN. [Concomitant]
     Active Substance: IBUPROFEN
  18. PRILOSEC [Suspect]
     Active Substance: OMEPRAZOLE MAGNESIUM
     Indication: DYSPEPSIA
     Route: 048
     Dates: start: 20080612
  19. PREVACID [Suspect]
     Active Substance: LANSOPRAZOLE
     Indication: DYSPEPSIA
     Route: 065
     Dates: start: 200708, end: 200711
  20. CARVEDILOL. [Concomitant]
     Active Substance: CARVEDILOL
     Indication: CARDIAC DISORDER
  21. ASPIRIN. [Concomitant]
     Active Substance: ASPIRIN
  22. PREVACID [Suspect]
     Active Substance: LANSOPRAZOLE
     Indication: DYSPEPSIA
     Route: 065
     Dates: start: 20070806
  23. ZANTAC [Concomitant]
     Active Substance: RANITIDINE HYDROCHLORIDE
  24. LISINOPRIL. [Concomitant]
     Active Substance: LISINOPRIL
  25. NEXIUM [Suspect]
     Active Substance: ESOMEPRAZOLE MAGNESIUM
     Indication: DYSPEPSIA
     Route: 048
     Dates: start: 200611
  26. PRILOSEC [Suspect]
     Active Substance: OMEPRAZOLE MAGNESIUM
     Indication: DYSPEPSIA
     Dosage: OMEPAAZOLE
     Route: 048
     Dates: start: 20050222
  27. PANTOPRAZOLE [Suspect]
     Active Substance: PANTOPRAZOLE
     Indication: DYSPEPSIA
     Route: 065
     Dates: start: 201601, end: 201612

REACTIONS (2)
  - Chronic kidney disease-mineral and bone disorder [Unknown]
  - Chronic kidney disease [Not Recovered/Not Resolved]

NARRATIVE: CASE EVENT DATE: 200806
